FAERS Safety Report 8815238 (Version 1)
Quarter: 2012Q4

REPORT INFORMATION
  Report Type: 
  Country: FR (occurrence: FR)
  Receive Date: 20120928
  Receipt Date: 20120928
  Transmission Date: 20130627
  Serious: Yes (Death, Hospitalization)
  Sender: FDA-Public Use
  Company Number: FR-GENZYME-CAMP-1002453

PATIENT
  Sex: Male
  Weight: 85 kg

DRUGS (6)
  1. CAMPATH [Suspect]
     Indication: CHRONIC LYMPHOCYTIC LEUKAEMIA
     Dosage: 30 mg, qd
     Route: 058
     Dates: start: 20080804, end: 20080806
  2. FLUDARA [Suspect]
     Indication: CHRONIC LYMPHOCYTIC LEUKAEMIA
     Dosage: 75 mg, qd
     Route: 048
     Dates: start: 20080804, end: 20080806
  3. ENDOXAN [Suspect]
     Indication: CHRONIC LYMPHOCYTIC LEUKAEMIA
     Dosage: 470 UNK, qd
     Route: 048
     Dates: start: 20080804, end: 20080806
  4. ZELITREX [Concomitant]
     Indication: ANTI-INFECTIVE THERAPY
     Dosage: 500 mg, bid
     Route: 048
     Dates: start: 20080311
  5. PENTACARINAT [Concomitant]
     Indication: ANTI-INFECTIVE THERAPY
     Dosage: 1 inhalation, per month
     Route: 065
     Dates: start: 20080708
  6. BACTRIM [Concomitant]
     Indication: ANTI-INFECTIVE THERAPY
     Dosage: 1 DF, qd
     Route: 065
     Dates: start: 20080311, end: 20090708

REACTIONS (3)
  - Histiocytosis haematophagic [Fatal]
  - Multi-organ failure [Fatal]
  - Richter^s syndrome [Fatal]
